FAERS Safety Report 8912944 (Version 2)
Quarter: 2012Q4

REPORT INFORMATION
  Report Type: Report from Study
  Country: DE (occurrence: DE)
  Receive Date: 20121116
  Receipt Date: 20121122
  Transmission Date: 20130627
  Serious: Yes (Hospitalization)
  Sender: FDA-Public Use
  Company Number: DE-ROCHE-1155961

PATIENT
  Age: 59 Year
  Sex: Male
  Weight: 74 kg

DRUGS (3)
  1. BEVACIZUMAB [Suspect]
     Indication: COLON CANCER
     Dosage: date of last dose prior to sae : 13/Nov/2012
     Route: 042
     Dates: start: 20110825
  2. OXALIPLATIN [Suspect]
     Indication: COLON CANCER
     Dosage: date of last dose prior to sae : 13/Nov/2012
     Route: 042
     Dates: start: 20110825
  3. CAPECITABINE [Suspect]
     Indication: COLON CANCER
     Dosage: date of last dose prior to sae : 13/Nov/2012
     Route: 048
     Dates: start: 20110825

REACTIONS (1)
  - Hypersensitivity [Recovered/Resolved]
